FAERS Safety Report 18411267 (Version 1)
Quarter: 2020Q4

REPORT INFORMATION
  Report Type: Spontaneous
  Country: US (occurrence: US)
  Receive Date: 20201021
  Receipt Date: 20201021
  Transmission Date: 20210114
  Serious: Yes (Other)
  Sender: FDA-Public Use
  Company Number: US-PURDUE-USA-2020-0171913

PATIENT
  Sex: Female

DRUGS (1)
  1. HYDROMORPHONE TABLETS [Suspect]
     Active Substance: HYDROMORPHONE
     Indication: PRODUCT USED FOR UNKNOWN INDICATION
     Dosage: UNK
     Route: 048

REACTIONS (11)
  - Alcohol abuse [Unknown]
  - Mania [Unknown]
  - Drug dependence [Unknown]
  - Drug abuse [Unknown]
  - Spinal cord injury [Unknown]
  - Depressed mood [Unknown]
  - Overdose [Unknown]
  - Learning disability [Unknown]
  - Stress [Unknown]
  - Head injury [Unknown]
  - Anger [Unknown]
